FAERS Safety Report 6794032-6 (Version None)
Quarter: 2010Q2

REPORT INFORMATION
  Report Type: 
  Country: None (occurrence: None)
  Receive Date: 20100624
  Receipt Date: 20070411
  Transmission Date: 20101027
  Serious: Yes (Other)
  Sender: FDA-Public Use
  Company Number: US-PFIZER INC-ENC200700052

PATIENT
  Sex: Male

DRUGS (2)
  1. ARGATROBAN [Suspect]
     Indication: HEPARIN-INDUCED THROMBOCYTOPENIA
     Dosage: 2 MCG/KG/MIN,FREQUENCY:  UNK
     Route: 042
  2. ARGATROBAN [Suspect]
     Indication: CARDIAC OPERATION

REACTIONS (1)
  - GASTROINTESTINAL HAEMORRHAGE [None]
